FAERS Safety Report 23437998 (Version 1)
Quarter: 2024Q1

REPORT INFORMATION
  Report Type: Spontaneous
  Country: US (occurrence: US)
  Receive Date: 20240124
  Receipt Date: 20240124
  Transmission Date: 20240410
  Serious: No
  Sender: FDA-Public Use
  Company Number: US-MYLANLABS-2024M1005255

PATIENT
  Sex: Female

DRUGS (2)
  1. ESTRADIOL TRANSDERMAL SYSTEM [Suspect]
     Active Substance: ESTRADIOL
     Indication: Micturition urgency
     Dosage: UNK, QW
     Route: 062
     Dates: start: 20231107
  2. ESTRADIOL TRANSDERMAL SYSTEM [Suspect]
     Active Substance: ESTRADIOL
     Indication: Incontinence

REACTIONS (3)
  - Drug level decreased [Unknown]
  - Product use in unapproved indication [Unknown]
  - Product adhesion issue [Unknown]
